FAERS Safety Report 14602818 (Version 1)
Quarter: 2018Q1

REPORT INFORMATION
  Report Type: Spontaneous
  Country: PT (occurrence: PT)
  Receive Date: 20180306
  Receipt Date: 20180306
  Transmission Date: 20180509
  Serious: Yes (Other)
  Sender: FDA-Public Use
  Company Number: PT-GLENMARK PHARMACEUTICALS-2018GMK032784

PATIENT
  Age: 18 Month
  Sex: Female

DRUGS (4)
  1. CLOTRIMAZOLE. [Concomitant]
     Active Substance: CLOTRIMAZOLE
     Indication: RASH
     Dosage: UNK
     Route: 061
  2. ZINC OXIDE. [Concomitant]
     Active Substance: ZINC OXIDE
     Indication: RASH
     Dosage: UNK
     Route: 061
  3. HYDROCORTISONE BUTYRATE. [Suspect]
     Active Substance: HYDROCORTISONE BUTYRATE
     Indication: DERMATITIS DIAPER
     Dosage: UNK
     Route: 061
  4. BETAMETHASONE DIPROPIONATE. [Suspect]
     Active Substance: BETAMETHASONE DIPROPIONATE
     Indication: DERMATITIS DIAPER
     Dosage: UNK
     Route: 061

REACTIONS (2)
  - Granuloma [Unknown]
  - Drug ineffective [Unknown]
